FAERS Safety Report 8273928-2 (Version None)
Quarter: 2012Q2

REPORT INFORMATION
  Report Type: 
  Country: None (occurrence: None)
  Receive Date: 20120411
  Receipt Date: 20120330
  Transmission Date: 20120825
  Serious: Yes (Other)
  Sender: FDA-Public Use
  Company Number: US-ELI_LILLY_AND_COMPANY-US201204001056

PATIENT
  Sex: Male

DRUGS (10)
  1. LOSARTAN POTASSIUM [Concomitant]
     Dosage: 100 MG, QD
  2. FORTEO [Suspect]
     Dosage: 20 UG, UNKNOWN
  3. PLAVIX [Concomitant]
     Dosage: 75 MG, QD
  4. ASPIRIN [Concomitant]
     Dosage: 325 MG, QD
  5. LIPITOR [Concomitant]
     Dosage: 40 MG, QD
  6. COREG CR [Concomitant]
     Dosage: 10 MG, QD
  7. HUMIRA [Concomitant]
     Dosage: 40 MG, WEEKLY (1/W)
  8. ARAVA [Concomitant]
     Dosage: 20 MG, QD
  9. HYDROCHLOROTHIAZIDE [Concomitant]
     Dosage: 12.5 MG, QD
  10. VITAMIN D [Concomitant]
     Dosage: 50000 U, WEEKLY (1/W)

REACTIONS (3)
  - TACHYCARDIA [None]
  - HYPOTENSION [None]
  - ATRIAL FIBRILLATION [None]
